FAERS Safety Report 9359247 (Version 1)
Quarter: 2013Q2

REPORT INFORMATION
  Report Type: Spontaneous
  Country: US (occurrence: US)
  Receive Date: 20130620
  Receipt Date: 20130620
  Transmission Date: 20140414
  Serious: No
  Sender: FDA-Public Use
  Company Number: US-PFIZER INC-2013184704

PATIENT
  Age: 52 Year
  Sex: Female

DRUGS (15)
  1. CELEBREX [Suspect]
     Dosage: UNK
  2. SKELAXIN [Suspect]
     Dosage: UNK
  3. DOXYCYCLINE [Suspect]
     Dosage: UNK
  4. AVELOX [Suspect]
     Dosage: UNK
  5. CODEINE [Suspect]
     Dosage: UNK
  6. PREVACID [Suspect]
     Dosage: UNK
  7. KEFLEX [Suspect]
     Dosage: UNK
  8. PYRIDIUM [Suspect]
     Dosage: UNK
  9. IODINE [Suspect]
     Dosage: UNK
  10. VIOXX [Suspect]
     Dosage: UNK
  11. TAVIST [Suspect]
     Dosage: UNK
  12. VICODIN [Suspect]
     Dosage: UNK
  13. TEQUIN [Suspect]
     Dosage: UNK
  14. ANAPROX [Suspect]
     Dosage: UNK
  15. MOBIC [Suspect]
     Dosage: UNK

REACTIONS (1)
  - Drug hypersensitivity [Unknown]
